FAERS Safety Report 11319153 (Version 5)
Quarter: 2016Q2

REPORT INFORMATION
  Report Type: Spontaneous
  Country: US (occurrence: US)
  Receive Date: 20150729
  Receipt Date: 20160429
  Transmission Date: 20160815
  Serious: No
  Sender: FDA-Public Use
  Company Number: US-ACTELION PHARMACEUTICALS US, INC.-A-US2015-112102

PATIENT
  Age: 51 Year
  Sex: Female

DRUGS (11)
  1. REMODULIN [Suspect]
     Active Substance: TREPROSTINIL
     Dosage: 53.8 NG/KG, UNK
     Route: 042
  2. OMPRAZOLE [Concomitant]
     Active Substance: OMEPRAZOLE
  3. KLOR-CON [Concomitant]
     Active Substance: POTASSIUM CHLORIDE
  4. ADCIRCA [Concomitant]
     Active Substance: TADALAFIL
  5. IBUPROFEN. [Concomitant]
     Active Substance: IBUPROFEN
  6. SINGULAIR [Concomitant]
     Active Substance: MONTELUKAST SODIUM
  7. LASIX [Concomitant]
     Active Substance: FUROSEMIDE
  8. ASPIRIN. [Concomitant]
     Active Substance: ASPIRIN
  9. AMLODIPINE [Concomitant]
     Active Substance: AMLODIPINE BESYLATE
  10. OPSUMIT [Suspect]
     Active Substance: MACITENTAN
     Indication: PULMONARY ARTERIAL HYPERTENSION
     Dosage: 10 MG, QD
     Route: 048
     Dates: start: 20150421
  11. REMODULIN [Suspect]
     Active Substance: TREPROSTINIL
     Indication: PRODUCT USED FOR UNKNOWN INDICATION
     Dosage: 10 MG/ML, UNK
     Route: 042

REACTIONS (10)
  - Catheter site pain [Recovering/Resolving]
  - Catheter site swelling [Unknown]
  - Catheter site warmth [Unknown]
  - Device related infection [Unknown]
  - Pruritus [Unknown]
  - Catheter site erythema [Not Recovered/Not Resolved]
  - Headache [Unknown]
  - Rash [Unknown]
  - Catheter site scab [Unknown]
  - Device leakage [Unknown]
